FAERS Safety Report 25538838 (Version 1)
Quarter: 2025Q3

REPORT INFORMATION
  Report Type: Spontaneous
  Country: US (occurrence: US)
  Receive Date: 20250710
  Receipt Date: 20250710
  Transmission Date: 20251020
  Serious: No
  Sender: SANOFI AVENTIS
  Company Number: US-SA-2025SA194279

PATIENT
  Sex: Female

DRUGS (2)
  1. DUPIXENT [Suspect]
     Active Substance: DUPILUMAB
     Indication: Neurodermatitis
     Dosage: 300 MG, Q3W
     Route: 058
     Dates: start: 202207
  2. DUPIXENT [Suspect]
     Active Substance: DUPILUMAB
     Indication: Pruritus

REACTIONS (2)
  - Rash pruritic [Unknown]
  - Product use in unapproved indication [Unknown]
